FAERS Safety Report 22764982 (Version 2)
Quarter: 2023Q4

REPORT INFORMATION
  Report Type: Spontaneous
  Country: FR (occurrence: FR)
  Receive Date: 20230731
  Receipt Date: 20231116
  Transmission Date: 20240110
  Serious: Yes (Hospitalization)
  Sender: FDA-Public Use
  Company Number: FR-ROCHE-3395855

PATIENT
  Age: 47 Year
  Sex: Female

DRUGS (3)
  1. XELODA [Suspect]
     Active Substance: CAPECITABINE
     Indication: Breast cancer
     Dosage: BID, FORTNIGHT FOLLOWED BY A ONE-WEEK BREAK, ?2600 MG EVERY DAY
     Route: 065
     Dates: start: 202110, end: 202305
  2. HERCEPTIN [Suspect]
     Active Substance: TRASTUZUMAB
     Indication: Breast cancer
     Dosage: 6 MG/KG EVERY 3 WEEKS
     Route: 041
     Dates: start: 202110, end: 202305
  3. TUKYSA [Suspect]
     Active Substance: TUCATINIB
     Indication: Breast cancer
     Dosage: 300 MG X 2 PER DAY
     Route: 065
     Dates: start: 202110, end: 202305

REACTIONS (3)
  - Ischaemic stroke [Recovered/Resolved with Sequelae]
  - Deep vein thrombosis [Recovered/Resolved with Sequelae]
  - Neoplasm progression [Unknown]

NARRATIVE: CASE EVENT DATE: 20220101
